FAERS Safety Report 9097003 (Version 1)
Quarter: 2013Q1

REPORT INFORMATION
  Report Type: Spontaneous
  Country: CN (occurrence: None)
  Receive Date: 20130124
  Receipt Date: 20130124
  Transmission Date: 20140127
  Serious: Yes (Other)
  Sender: FDA-Public Use
  Company Number: VAL_01288_2013

PATIENT
  Sex: Male
  Weight: 60 kg

DRUGS (1)
  1. BENAZEPRIL (BENAZEPRIL-BENAZEPRIL HYDROCHLORIDE) [Suspect]
     Indication: HYPERTENSION
     Route: 048
     Dates: start: 20111015, end: 20111021

REACTIONS (4)
  - Catatonia [None]
  - Headache [None]
  - Anxiety [None]
  - Insomnia [None]
